FAERS Safety Report 5928103-0 (Version None)
Quarter: 2008Q4

REPORT INFORMATION
  Report Type: 
  Country: None (occurrence: None)
  Receive Date: 20081023
  Receipt Date: 20081023
  Transmission Date: 20090506
  Serious: Yes (Other)
  Sender: FDA-Public Use
  Company Number: A0753217A

PATIENT
  Age: 45 Year
  Sex: Female

DRUGS (1)
  1. NICODERM CQ [Suspect]
     Indication: SMOKING CESSATION THERAPY
     Dosage: 21MG UNKNOWN
     Route: 062

REACTIONS (3)
  - AGGRESSION [None]
  - DRUG INEFFECTIVE [None]
  - NICOTINE DEPENDENCE [None]
